FAERS Safety Report 17013460 (Version 1)
Quarter: 2019Q4

REPORT INFORMATION
  Report Type: Spontaneous
  Country: US (occurrence: US)
  Receive Date: 20191002
  Receipt Date: 20191002
  Transmission Date: 20200122
  Serious: Yes (Other)
  Sender: FDA-Public Use
  Company Number: None

PATIENT
  Age: 60 Year
  Sex: Female
  Weight: 96.16 kg

DRUGS (3)
  1. AIMOVIG [Suspect]
     Active Substance: ERENUMAB-AOOE
     Indication: MIGRAINE
     Route: 058
     Dates: start: 20190420, end: 20190901
  2. STEROIDS [Concomitant]
     Active Substance: UNSPECIFIED INGREDIENT
  3. AIMOVIG [Suspect]
     Active Substance: ERENUMAB-AOOE
     Indication: MIGRAINE WITH AURA
     Route: 058
     Dates: start: 20190420, end: 20190901

REACTIONS (7)
  - Oral pain [None]
  - Oropharyngeal pain [None]
  - Pharyngeal swelling [None]
  - Mouth swelling [None]
  - Rash [None]
  - Stomatitis [None]
  - Pruritus [None]

NARRATIVE: CASE EVENT DATE: 20190801
